FAERS Safety Report 4561180-0 (Version None)
Quarter: 2005Q1

REPORT INFORMATION
  Report Type: 
  Country: None (occurrence: None)
  Receive Date: 20050121
  Receipt Date: 20050107
  Transmission Date: 20050727
  Serious: Yes (Other)
  Sender: FDA-Public Use
  Company Number: K200500039

PATIENT
  Age: 86 Year
  Sex: Female
  Weight: 58.5 kg

DRUGS (7)
  1. LEVOXYL [Suspect]
     Indication: HYPOTHYROIDISM
     Dosage: 50 MCG, QD, ORAL
     Route: 048
     Dates: start: 20030709
  2. ATACAND [Concomitant]
  3. NORVASC /DEN/ (AMLODIPINE BESILATE) [Concomitant]
  4. PLAVIX [Concomitant]
  5. PRAVACHOL [Concomitant]
  6. ACTONEL [Concomitant]
  7. LUMIGAN [Concomitant]

REACTIONS (13)
  - AORTIC STENOSIS [None]
  - AORTIC VALVE CALCIFICATION [None]
  - AORTIC VALVE DISEASE [None]
  - AORTIC VALVE INCOMPETENCE [None]
  - DIASTOLIC DYSFUNCTION [None]
  - DYSPNOEA AT REST [None]
  - HAEMATOCRIT DECREASED [None]
  - HAEMOGLOBIN DECREASED [None]
  - MITRAL VALVE CALCIFICATION [None]
  - MITRAL VALVE DISEASE [None]
  - TRICUSPID VALVE INCOMPETENCE [None]
  - VENTRICULAR DYSFUNCTION [None]
  - VENTRICULAR HYPERTROPHY [None]
